FAERS Safety Report 10247859 (Version 2)
Quarter: 2014Q2

REPORT INFORMATION
  Report Type: Report from Study
  Country: US (occurrence: US)
  Receive Date: 20140619
  Receipt Date: 20140619
  Transmission Date: 20141212
  Serious: Yes (Congenital Anomaly)
  Sender: FDA-Public Use
  Company Number: US-TEVA-443718USA

PATIENT
  Sex: 0

DRUGS (8)
  1. NUVIGIL [Suspect]
     Route: 064
  2. PAXIL [Suspect]
     Indication: CATAPLEXY
     Dosage: 40 MILLIGRAM DAILY;
     Dates: start: 2013
  3. DIFLUCAN [Concomitant]
     Dates: start: 2013
  4. RITALIN [Concomitant]
     Indication: NARCOLEPSY
     Dates: start: 2013
  5. RITALIN [Concomitant]
  6. ZOLOFT [Concomitant]
     Dates: start: 2013
  7. TOPAMAX [Concomitant]
     Dates: start: 2013
  8. SYMBICORT [Concomitant]
     Indication: CATAPLEXY
     Dates: start: 2013

REACTIONS (2)
  - Congenital heart valve disorder [Unknown]
  - Exposure during pregnancy [Unknown]
